FAERS Safety Report 5919010-8 (Version None)
Quarter: 2008Q4

REPORT INFORMATION
  Report Type: 
  Country: None (occurrence: None)
  Receive Date: 20081014
  Receipt Date: 20081014
  Transmission Date: 20090506
  Serious: No
  Sender: FDA-Public Use
  Company Number: None

PATIENT
  Age: 45 Year
  Sex: Male
  Weight: 111.1313 kg

DRUGS (1)
  1. AZITHROMYCIN [Suspect]
     Indication: SINUSITIS
     Dosage: TAKE 2 TABS ON DAY 1 THEN 1 TAB OPHTHALMIC
     Route: 047
     Dates: start: 20081011, end: 20081015

REACTIONS (2)
  - PRURITUS [None]
  - URTICARIA [None]
